FAERS Safety Report 8504532-6 (Version None)
Quarter: 2012Q3

REPORT INFORMATION
  Report Type: 
  Country: None (occurrence: None)
  Receive Date: 20120711
  Receipt Date: 20120703
  Transmission Date: 20120928
  Serious: Yes (Death, Hospitalization)
  Sender: FDA-Public Use
  Company Number: GR-ROCHE-1084327

PATIENT
  Age: 71 Year
  Sex: Male
  Weight: 69 kg

DRUGS (7)
  1. LIPIDIL [Concomitant]
  2. INDAPAMIDE [Concomitant]
  3. EXFORGE [Concomitant]
  4. XELODA [Suspect]
     Indication: COLORECTAL CANCER METASTATIC
     Route: 048
     Dates: start: 20120525
  5. AVASTIN [Suspect]
     Indication: COLORECTAL CANCER METASTATIC
     Route: 042
     Dates: start: 20120525
  6. CARBOPLATIN [Suspect]
     Indication: COLORECTAL CANCER METASTATIC
     Route: 042
     Dates: start: 20120525
  7. KERLONE [Concomitant]

REACTIONS (6)
  - FEBRILE NEUTROPENIA [None]
  - TACHYPNOEA [None]
  - ACUTE RESPIRATORY FAILURE [None]
  - DIARRHOEA [None]
  - ABDOMINAL PAIN [None]
  - SEPSIS [None]
